FAERS Safety Report 10158584 (Version 1)
Quarter: 2014Q2

REPORT INFORMATION
  Report Type: Spontaneous
  Country: US (occurrence: US)
  Receive Date: 20140508
  Receipt Date: 20140508
  Transmission Date: 20141212
  Serious: Yes (Other)
  Sender: FDA-Public Use
  Company Number: US-JNJFOC-20140418835

PATIENT
  Sex: Female
  Weight: 61.24 kg

DRUGS (2)
  1. ORTHO EVRA [Suspect]
     Indication: OVARIAN CYST
     Route: 062
     Dates: start: 201306
  2. BENADRYL [Suspect]
     Indication: PRODUCT USED FOR UNKNOWN INDICATION
     Route: 048

REACTIONS (3)
  - Anaphylactic shock [Recovered/Resolved]
  - Rubber sensitivity [Not Recovered/Not Resolved]
  - Off label use [Unknown]
